FAERS Safety Report 9307609 (Version 1)
Quarter: 2013Q2

REPORT INFORMATION
  Report Type: Spontaneous
  Country: US (occurrence: US)
  Receive Date: 20130524
  Receipt Date: 20130524
  Transmission Date: 20140414
  Serious: No
  Sender: FDA-Public Use
  Company Number: US-PFIZER INC-2013155770

PATIENT
  Age: 83 Year
  Sex: Female

DRUGS (3)
  1. LIPITOR [Suspect]
     Indication: BLOOD CHOLESTEROL INCREASED
     Dosage: 20 MG, 1X/DAY
     Route: 048
  2. LIPITOR [Suspect]
     Dosage: 40 MG, 1X/DAY
     Route: 048
  3. LETROZOLE [Concomitant]
     Indication: BONE CANCER
     Dosage: UNK

REACTIONS (3)
  - Tremor [Not Recovered/Not Resolved]
  - Nervousness [Not Recovered/Not Resolved]
  - Dysgraphia [Not Recovered/Not Resolved]
